FAERS Safety Report 6130008-X (Version None)
Quarter: 2009Q1

REPORT INFORMATION
  Report Type: 
  Country: None (occurrence: None)
  Receive Date: 20090324
  Receipt Date: 20090309
  Transmission Date: 20090719
  Serious: Yes (Other)
  Sender: FDA-Public Use
  Company Number: DE-GENENTECH-279516

PATIENT
  Sex: Female

DRUGS (3)
  1. HERCEPTIN [Suspect]
     Indication: BREAST CANCER
     Dosage: 164 MG, 1/WEEK
     Route: 042
     Dates: start: 20081201
  2. DOCETAXEL [Suspect]
     Indication: BREAST CANCER
     Dosage: 145 MG, Q3W
     Route: 042
     Dates: start: 20081201
  3. CARBOPLATIN [Concomitant]
     Indication: BREAST CANCER
     Dosage: UNK
     Dates: start: 20081201

REACTIONS (3)
  - CUTIS LAXA [None]
  - SKIN DISCOLOURATION [None]
  - SKIN EXFOLIATION [None]
